FAERS Safety Report 7780587-1 (Version None)
Quarter: 2011Q3

REPORT INFORMATION
  Report Type: 
  Country: None (occurrence: None)
  Receive Date: 20110927
  Receipt Date: 20110914
  Transmission Date: 20111222
  Serious: Yes (Hospitalization)
  Sender: FDA-Public Use
  Company Number: CA-BAYER-2011-086060

PATIENT
  Age: 59 Year
  Sex: Male

DRUGS (4)
  1. ASPIRIN [Suspect]
     Dosage: 81 MG, UNK
     Route: 048
  2. NAPROXEN SODIUM [Suspect]
     Dosage: 660 MG, UNK
     Route: 048
  3. PRILOSEC [Concomitant]
  4. CRESTOR [Concomitant]

REACTIONS (2)
  - CHEST PAIN [None]
  - URTICARIA [None]
